FAERS Safety Report 16137036 (Version 1)
Quarter: 2019Q2

REPORT INFORMATION
  Report Type: Report from Study
  Country: JP (occurrence: JP)
  Receive Date: 20190401
  Receipt Date: 20190401
  Transmission Date: 20190711
  Serious: Yes (Other)
  Sender: FDA-Public Use
  Company Number: JP-ROCHE-2287946

PATIENT

DRUGS (6)
  1. OXALIPLATIN. [Suspect]
     Active Substance: OXALIPLATIN
     Indication: COLON CANCER
     Dosage: ON DAY 1
     Route: 065
  2. CELECOXIB. [Suspect]
     Active Substance: CELECOXIB
     Indication: RECTOSIGMOID CANCER
  3. CAPECITABINE. [Suspect]
     Active Substance: CAPECITABINE
     Indication: COLON CANCER
     Dosage: FROM THE EVENING ON DAY 1 TO THE MORNING ON DAY 15, EVERY 3 WEEKS
     Route: 065
  4. OXALIPLATIN. [Suspect]
     Active Substance: OXALIPLATIN
     Indication: RECTOSIGMOID CANCER
  5. CELECOXIB. [Suspect]
     Active Substance: CELECOXIB
     Indication: COLON CANCER
     Route: 065
  6. CAPECITABINE. [Suspect]
     Active Substance: CAPECITABINE
     Indication: RECTOSIGMOID CANCER

REACTIONS (15)
  - Blood bilirubin increased [Unknown]
  - Palmar-plantar erythrodysaesthesia syndrome [Unknown]
  - Hypersensitivity [Unknown]
  - Neutropenia [Unknown]
  - Decreased appetite [Unknown]
  - Diarrhoea [Unknown]
  - Nausea [Unknown]
  - Stomatitis [Unknown]
  - Platelet count decreased [Unknown]
  - Pneumonitis [Unknown]
  - Fatigue [Unknown]
  - Vomiting [Unknown]
  - Peripheral sensory neuropathy [Unknown]
  - Aspartate aminotransferase increased [Unknown]
  - Duodenal ulcer [Unknown]
